FAERS Safety Report 10974596 (Version 1)
Quarter: 2015Q2

REPORT INFORMATION
  Report Type: Spontaneous
  Country: PT (occurrence: PT)
  Receive Date: 20150401
  Receipt Date: 20150401
  Transmission Date: 20150821
  Serious: Yes (Other)
  Sender: FDA-Public Use
  Company Number: PT-ACTAVIS-2015-06796

PATIENT
  Age: 56 Year
  Sex: Female

DRUGS (4)
  1. ONDANSETROM                        /00955301/ [Concomitant]
     Indication: ALLERGY PROPHYLAXIS
     Dosage: 8 MG, DAILY. AS PART OF THE PRE-MEDICATION SCHEME
     Route: 042
     Dates: start: 20150210, end: 20150210
  2. EPIRRUBICINA MEDAC [Concomitant]
     Indication: BREAST CANCER
     Dosage: 2 MG/ML, CYCLICAL
     Route: 042
     Dates: start: 20150210, end: 20150210
  3. DOCETAXEL ACTAVIS [Suspect]
     Active Substance: DOCETAXEL
     Indication: BREAST CANCER
     Dosage: 75 MG/M2, CYCLICAL ((1 DOSE EVERY 21 DAYS))
     Route: 042
     Dates: start: 20150210, end: 20150210
  4. DEXAMETASONA                       /00016001/ [Concomitant]
     Indication: ALLERGY PROPHYLAXIS
     Dosage: 20 MG, DAILY. AS PART OF THE PRE-MEDICATION SCHEME
     Route: 042
     Dates: start: 20150210, end: 20150210

REACTIONS (4)
  - Injection site discolouration [Not Recovered/Not Resolved]
  - Injection site pruritus [Not Recovered/Not Resolved]
  - Skin lesion [Not Recovered/Not Resolved]
  - Injection site pain [Not Recovered/Not Resolved]

NARRATIVE: CASE EVENT DATE: 20150213
